FAERS Safety Report 7035319-1 (Version None)
Quarter: 2010Q4

REPORT INFORMATION
  Report Type: 
  Country: None (occurrence: None)
  Receive Date: 20101008
  Receipt Date: 20100928
  Transmission Date: 20110411
  Serious: Yes (Death)
  Sender: FDA-Public Use
  Company Number: B0677676A

PATIENT
  Age: 60 Year
  Sex: Male
  Weight: 105 kg

DRUGS (8)
  1. AVANDAMET [Suspect]
     Dosage: 4MG PER DAY
     Route: 048
     Dates: end: 20100922
  2. GLIPIZIDE [Concomitant]
  3. METFORMIN HCL [Concomitant]
     Dosage: 1TAB PER DAY
  4. AMLODIPINE [Concomitant]
  5. SIMVASTATIN [Concomitant]
  6. SOTALOL [Concomitant]
  7. BIPRETERAX [Concomitant]
  8. NICERGOLINE [Concomitant]

REACTIONS (5)
  - ABDOMINAL DISTENSION [None]
  - EYE SWELLING [None]
  - FATIGUE [None]
  - MYOCARDIAL INFARCTION [None]
  - SWELLING FACE [None]
